FAERS Safety Report 15704150 (Version 1)
Quarter: 2018Q4

REPORT INFORMATION
  Report Type: Spontaneous
  Country: US (occurrence: US)
  Receive Date: 20181127
  Receipt Date: 20181127
  Transmission Date: 20190205
  Serious: Yes (Hospitalization)
  Sender: FDA-Public Use
  Company Number: None

PATIENT
  Sex: Male

DRUGS (22)
  1. XELJANZ XR [Suspect]
     Active Substance: TOFACITINIB CITRATE
     Indication: RHEUMATOID ARTHRITIS
     Route: 048
  2. TIZANIDINE CAP 4MG [Concomitant]
     Dates: start: 20181127
  3. AMITRIPTYLIN TAB 25MG [Concomitant]
     Dates: start: 20181121
  4. DILTIAZEM CAP 120MG ER [Concomitant]
     Dates: start: 20181104
  5. SMZ/TMP DS TAB 800-160 [Concomitant]
     Active Substance: SULFAMETHOXAZOLE\TRIMETHOPRIM
     Dates: start: 20180928
  6. TROKENDI XR CAP 100MG [Concomitant]
     Dates: start: 20180913
  7. DILTIAZEM CAP 360MG CD [Concomitant]
     Dates: start: 20181126
  8. FLOVENT HFA AER 110MCG [Concomitant]
     Dates: start: 20181102
  9. TORSEMIDE TAB 20MG [Concomitant]
     Dates: start: 20181126
  10. CYANOCOBALAM INJ 1000MCG [Concomitant]
     Dates: start: 20181016
  11. GABAPENTIN CAP 300MG [Concomitant]
     Active Substance: GABAPENTIN
     Dates: start: 20180927
  12. PRAMIPEXOLE TAB 0.125MG [Concomitant]
     Dates: start: 20180924
  13. ALBUTEROL NEB 0.083% [Concomitant]
     Dates: start: 20180817
  14. PREDNISONE TAB 5MG [Concomitant]
     Dates: start: 20180815
  15. METHOTREXATE INJ 50MG/2ML [Concomitant]
     Active Substance: METHOTREXATE SODIUM
     Dates: start: 20181025
  16. FLUTICASONE SPR 50MCG [Concomitant]
     Active Substance: FLUTICASONE
     Dates: start: 20180916
  17. TIZANIDINE 4MG TAB [Concomitant]
     Dates: start: 20181108
  18. MATZIM LA TAB 420NG/24 [Concomitant]
     Dates: start: 20181022
  19. TRIAMCINOLON CRE 0.1% [Concomitant]
     Dates: start: 20180817
  20. OXYCOD/APAP TAB 5-325 [Concomitant]
     Dates: start: 20181126
  21. METHOTREXATE 2.5MG [Concomitant]
     Active Substance: METHOTREXATE
     Dates: start: 20180913
  22. OXYCOD/APAP TAB 10-325MG [Concomitant]
     Dates: start: 20180818

REACTIONS (1)
  - Generalised oedema [None]
